FAERS Safety Report 11245659 (Version 2)
Quarter: 2015Q3

REPORT INFORMATION
  Report Type: Spontaneous
  Country: US (occurrence: US)
  Receive Date: 20150707
  Receipt Date: 20150908
  Transmission Date: 20151125
  Serious: No
  Sender: FDA-Public Use
  Company Number: US-GLAXOSMITHKLINE-US2015094175

PATIENT
  Sex: Male

DRUGS (4)
  1. FORADIL [Concomitant]
     Active Substance: FORMOTEROL FUMARATE
  2. ADVAIR DISKUS [Suspect]
     Active Substance: FLUTICASONE PROPIONATE\SALMETEROL XINAFOATE
     Indication: ASTHMA
     Dosage: 1 PUFF(S), UNK
     Route: 055
  3. FLOVENT DISKUS [Suspect]
     Active Substance: FLUTICASONE PROPIONATE
     Indication: ASTHMA
     Dosage: 2 PUFF(S), QD
     Route: 045
  4. ALVESCO [Concomitant]
     Active Substance: CICLESONIDE

REACTIONS (3)
  - Device use error [Unknown]
  - Off label use [Unknown]
  - Oral candidiasis [Recovered/Resolved]
